FAERS Safety Report 9368558 (Version 1)
Quarter: 2013Q2

REPORT INFORMATION
  Report Type: Report from Study
  Country: MX (occurrence: MX)
  Receive Date: 20130626
  Receipt Date: 20130626
  Transmission Date: 20140414
  Serious: Yes (Death)
  Sender: FDA-Public Use
  Company Number: MX-ROCHE-1241401

PATIENT
  Sex: Male

DRUGS (2)
  1. XELODA [Suspect]
     Indication: COLORECTAL CANCER
     Route: 048
     Dates: start: 20080901
  2. AVASTIN [Suspect]
     Indication: COLORECTAL CANCER
     Route: 030
     Dates: start: 20080901

REACTIONS (1)
  - Death [Fatal]
